FAERS Safety Report 8933031 (Version 3)
Quarter: 2013Q1

REPORT INFORMATION
  Report Type: Report from Study
  Country: JP (occurrence: JP)
  Receive Date: 20121128
  Receipt Date: 20130109
  Transmission Date: 20140127
  Serious: Yes (Hospitalization, Other)
  Sender: FDA-Public Use
  Company Number: JP-VERTEX PHARMACEUTICAL INC.-2012-025076

PATIENT
  Age: 63 Year
  Sex: Female

DRUGS (12)
  1. VX-950 (TELAPREVIR) [Suspect]
     Indication: CHRONIC HEPATITIS C
     Dosage: 1500 MG, QD
     Route: 048
     Dates: start: 20120924, end: 20121107
  2. RIBAVIRIN [Suspect]
     Indication: CHRONIC HEPATITIS C
     Dosage: 400 MG, QD
     Route: 048
     Dates: start: 20120924, end: 20121030
  3. RIBAVIRIN [Suspect]
     Dosage: 200 MG, QD
     Route: 048
     Dates: start: 20121030, end: 20121108
  4. RIBAVIRIN [Suspect]
     Dosage: 400 MG, QD
     Route: 048
     Dates: end: 20121107
  5. RIBAVIRIN [Suspect]
     Dosage: 200 MG, QD
     Route: 048
     Dates: start: 20121108, end: 20121209
  6. RIBAVIRIN [Suspect]
     Dosage: 400 MG, QD
     Route: 048
     Dates: start: 20121210
  7. PEGINTERFERON ALFA-2B (GENETICAL RECOMBINATION) [Concomitant]
     Dosage: 0.3 ?G/KG
     Route: 058
  8. PEGINTERFERON ALFA-2B (GENETICAL RECOMBINATION) [Concomitant]
     Dosage: 0.2 ?G/KG, QW
     Route: 058
     Dates: end: 20121206
  9. PEGINTERFERON ALFA-2B (GENETICAL RECOMBINATION) [Concomitant]
     Dosage: 0.3 ?G/KG, QW
     Route: 058
     Dates: start: 20121207
  10. FEBURIC [Concomitant]
     Dosage: 10 MG, QD
     Route: 048
     Dates: start: 20120924
  11. NEXIUM                             /01479302/ [Concomitant]
     Dosage: 20 MG, QD
     Route: 048
     Dates: start: 20120924
  12. BERIZYM                            /01945301/ [Concomitant]
     Dosage: 3 G, QD
     Route: 048
     Dates: start: 20120924

REACTIONS (2)
  - Rash [Unknown]
  - Rash [Recovered/Resolved]
